FAERS Safety Report 13285635 (Version 1)
Quarter: 2017Q1

REPORT INFORMATION
  Report Type: Other
  Country: DK (occurrence: DK)
  Receive Date: 20170302
  Receipt Date: 20170302
  Transmission Date: 20170428
  Serious: Yes (Life-Threatening)
  Sender: FDA-Public Use
  Company Number: DK-HIKMA PHARMACEUTICALS CO. LTD-2017DK002227

PATIENT

DRUGS (6)
  1. REMSIMA [Suspect]
     Active Substance: INFLIXIMAB
     Dosage: 500 MG, UNK
     Route: 042
     Dates: start: 20170125, end: 20170125
  2. MORPHINE SULFATE PENTAHYDRATE [Concomitant]
     Indication: PAIN
     Dosage: UNK
     Dates: start: 20170123, end: 20170131
  3. CIPROFLOXACIN ?HEXAL? [Concomitant]
     Indication: INFECTION
     Dosage: UNK
     Dates: start: 20170124, end: 20170131
  4. REMSIMA [Suspect]
     Active Substance: INFLIXIMAB
     Indication: POUCHITIS
     Dosage: 500 MG, UNK
     Route: 042
     Dates: start: 20170116, end: 20170116
  5. REMSIMA [Suspect]
     Active Substance: INFLIXIMAB
     Dosage: 500 MG, UNK
     Route: 042
     Dates: start: 20170125, end: 20170125
  6. PAMOL F [Concomitant]
     Indication: PAIN
     Dosage: UNK
     Dates: start: 20170105

REACTIONS (5)
  - Dyspnoea [Recovered/Resolved]
  - Dermatitis allergic [Recovered/Resolved]
  - Rash [Recovered/Resolved]
  - Thirst [Unknown]
  - Allergic respiratory disease [Recovered/Resolved]

NARRATIVE: CASE EVENT DATE: 20170125
